FAERS Safety Report 10413522 (Version 1)
Quarter: 2014Q3

REPORT INFORMATION
  Report Type: Other
  Country: NL (occurrence: NL)
  Receive Date: 20140827
  Receipt Date: 20140827
  Transmission Date: 20150326
  Serious: Yes (Other)
  Sender: FDA-Public Use
  Company Number: NL-MYLAN-2014M1002292

PATIENT

DRUGS (1)
  1. ETHINYLESTRADIOL/LEVONORGESTREL MYLAN 0,03/0,15 MG, OMHULDE TABLETTEN [Suspect]
     Active Substance: ETHINYL ESTRADIOL\LEVONORGESTREL
     Indication: PRODUCT USED FOR UNKNOWN INDICATION
     Dosage: NO CONCOMITANT
     Route: 048

REACTIONS (2)
  - Headache [Unknown]
  - Menorrhagia [Unknown]
